FAERS Safety Report 7166314-X (Version None)
Quarter: 2010Q4

REPORT INFORMATION
  Report Type: 
  Country: None (occurrence: None)
  Receive Date: 20101216
  Receipt Date: 20101213
  Transmission Date: 20110411
  Serious: Yes (Death, Life-Threatening, Hospitalization)
  Sender: FDA-Public Use
  Company Number: CA-SANOFI-AVENTIS-2010SA071878

PATIENT
  Age: 62 Year
  Sex: Female
  Weight: 65 kg

DRUGS (15)
  1. TAXOTERE [Suspect]
     Indication: BREAST CANCER
     Route: 041
     Dates: start: 20101108, end: 20101108
  2. TAXOTERE [Suspect]
     Route: 041
     Dates: start: 20100927, end: 20100927
  3. DILTIAZEM [Concomitant]
     Route: 048
     Dates: start: 20091201
  4. RAMIPRIL [Concomitant]
     Route: 048
     Dates: start: 20091201
  5. TRIAMTERENE AND HYDROCHLOROTHIAZIDE [Concomitant]
     Route: 048
     Dates: start: 20080101
  6. METFORMIN HCL [Concomitant]
     Route: 048
     Dates: start: 20090101
  7. CALCIUM [Concomitant]
     Route: 048
  8. SENNA [Concomitant]
     Route: 048
     Dates: start: 20100901
  9. GRANISETRON HCL [Concomitant]
     Indication: PREMEDICATION
     Dosage: FOR 3 DAYS WITH EVERY CYCLE TREATMENT
     Route: 048
  10. DEXAMETHASONE [Concomitant]
     Indication: PREMEDICATION
     Dosage: FOR 3 DAYS WITH EVERY CYCLE TREATMENT
     Route: 048
  11. PANTOPRAZOLE [Concomitant]
     Route: 048
     Dates: start: 20100901
  12. PROCHLORPERAZINE [Concomitant]
     Route: 048
  13. CYCLOPHOSPHAMIDE [Concomitant]
     Indication: BREAST CANCER
     Route: 042
     Dates: start: 20100927, end: 20100927
  14. CYCLOPHOSPHAMIDE [Concomitant]
     Route: 042
     Dates: start: 20101108, end: 20101108
  15. VITAMIN D [Concomitant]
     Dosage: DOSE:400 UNIT(S)
     Route: 048

REACTIONS (2)
  - DEATH [None]
  - DYSPNOEA [None]
